FAERS Safety Report 15694860 (Version 1)
Quarter: 2018Q4

REPORT INFORMATION
  Report Type: Spontaneous
  Country: CN (occurrence: CN)
  Receive Date: 20181206
  Receipt Date: 20181206
  Transmission Date: 20190205
  Serious: Yes (Other)
  Sender: FDA-Public Use
  Company Number: CN-PFIZER INC-2018500245

PATIENT
  Age: 76 Year
  Sex: Male

DRUGS (4)
  1. BIAPENEM [Concomitant]
     Active Substance: BIAPENEM
     Indication: RESPIRATORY FAILURE
  2. BIAPENEM [Concomitant]
     Active Substance: BIAPENEM
     Indication: PNEUMONIA ASPIRATION
     Dosage: UNK
  3. ZYVOX [Suspect]
     Active Substance: LINEZOLID
     Indication: RESPIRATORY FAILURE
  4. ZYVOX [Suspect]
     Active Substance: LINEZOLID
     Indication: PNEUMONIA ASPIRATION
     Dosage: UNK
     Route: 042

REACTIONS (1)
  - Hypoglycaemic coma [Recovering/Resolving]

NARRATIVE: CASE EVENT DATE: 20181130
